FAERS Safety Report 15469540 (Version 1)
Quarter: 2018Q4

REPORT INFORMATION
  Report Type: Spontaneous
  Country: US (occurrence: US)
  Receive Date: 20181005
  Receipt Date: 20181005
  Transmission Date: 20190205
  Serious: No
  Sender: FDA-Public Use
  Company Number: US-JNJFOC-20180925075

PATIENT
  Sex: Male

DRUGS (21)
  1. TUSSIONEX                          /00004701/ [Concomitant]
     Active Substance: BROMHEXINE
  2. TOCOPHEROL [Concomitant]
     Active Substance: TOCOPHEROL
  3. VITAMIN B12 [Concomitant]
     Active Substance: CYANOCOBALAMIN
  4. ASPIRIN. [Concomitant]
     Active Substance: ASPIRIN
  5. TAMSULOSIN [Concomitant]
     Active Substance: TAMSULOSIN
  6. VITAMIN B6 [Concomitant]
     Active Substance: PYRIDOXINE HYDROCHLORIDE
  7. VITAMIN D [Concomitant]
     Active Substance: CHOLECALCIFEROL
  8. AMIODARONE [Concomitant]
     Active Substance: AMIODARONE
  9. FUROSEMIDE. [Concomitant]
     Active Substance: FUROSEMIDE
  10. PROAIR HFA [Concomitant]
     Active Substance: ALBUTEROL SULFATE
  11. DOCUSATE [Concomitant]
     Active Substance: DOCUSATE
  12. DILTIAZEM. [Concomitant]
     Active Substance: DILTIAZEM
  13. GLYBURIDE. [Concomitant]
     Active Substance: GLYBURIDE
  14. ALLOPURINOL. [Concomitant]
     Active Substance: ALLOPURINOL
  15. CLOPIDOGREL [Concomitant]
     Active Substance: CLOPIDOGREL BISULFATE
  16. NITROSTAT [Concomitant]
     Active Substance: NITROGLYCERIN
  17. FOLIC ACID. [Concomitant]
     Active Substance: FOLIC ACID
  18. ISOSORBIDE. [Concomitant]
     Active Substance: ISOSORBIDE
  19. PANTOPRAZOLE [Concomitant]
     Active Substance: PANTOPRAZOLE
  20. IMBRUVICA [Suspect]
     Active Substance: IBRUTINIB
     Indication: MANTLE CELL LYMPHOMA
     Route: 048
     Dates: start: 20180719, end: 2018
  21. CARVEDILOL. [Concomitant]
     Active Substance: CARVEDILOL

REACTIONS (1)
  - Toxicity to various agents [Unknown]

NARRATIVE: CASE EVENT DATE: 2018
